FAERS Safety Report 24105746 (Version 1)
Quarter: 2024Q3

REPORT INFORMATION
  Report Type: Spontaneous
  Country: US (occurrence: None)
  Receive Date: 20240717
  Receipt Date: 20240717
  Transmission Date: 20241016
  Serious: No
  Sender: ASTRAZENECA
  Company Number: 2024A141142

PATIENT
  Age: 28618 Day
  Sex: Male
  Weight: 69.4 kg

DRUGS (2)
  1. WAINUA [Suspect]
     Active Substance: EPLONTERSEN
     Indication: Polyneuropathy
     Dosage: 45MG/ML MONTHLY
     Route: 058
     Dates: start: 20240521
  2. WAINUA [Suspect]
     Active Substance: EPLONTERSEN
     Indication: Amyloidosis
     Dosage: 45MG/ML MONTHLY
     Route: 058
     Dates: start: 20240521

REACTIONS (1)
  - Glaucoma [Not Recovered/Not Resolved]

NARRATIVE: CASE EVENT DATE: 20240614
